FAERS Safety Report 15656635 (Version 2)
Quarter: 2020Q3

REPORT INFORMATION
  Report Type: Spontaneous
  Country: US (occurrence: US)
  Receive Date: 20181126
  Receipt Date: 20200819
  Transmission Date: 20201102
  Serious: Yes (Other)
  Sender: FDA-Public Use
  Company Number: US-GILEAD-2018-0376156

PATIENT
  Age: 48 Year
  Sex: Female
  Weight: 53.52 kg

DRUGS (22)
  1. CLORAZEPATE [Concomitant]
     Active Substance: CLORAZEPATE DIPOTASSIUM
  2. MELOXICAM. [Concomitant]
     Active Substance: MELOXICAM
  3. ONDANSETRON [Concomitant]
     Active Substance: ONDANSETRON
  4. VALIUM [Concomitant]
     Active Substance: DIAZEPAM
  5. HYDROMORPHONE [Concomitant]
     Active Substance: HYDROMORPHONE
  6. ESTRADIOL. [Concomitant]
     Active Substance: ESTRADIOL
  7. ATRIPLA [Suspect]
     Active Substance: EFAVIRENZ\EMTRICITABINE\TENOFOVIR DISOPROXIL FUMARATE
     Indication: HIV INFECTION
     Dosage: UNK
     Route: 048
     Dates: start: 2006, end: 20181203
  8. STRIBILD [Suspect]
     Active Substance: COBICISTAT\ELVITEGRAVIR\EMTRICITABINE\TENOFOVIR DISOPROXIL FUMARATE
     Indication: HIV INFECTION
     Dosage: UNK
     Route: 048
     Dates: start: 20160210, end: 20160713
  9. CALCIUM + VIT D [Concomitant]
     Active Substance: CALCIUM\VITAMIN D
  10. TRUVADA [Suspect]
     Active Substance: EMTRICITABINE\TENOFOVIR DISOPROXIL FUMARATE
     Indication: HIV INFECTION
     Dosage: UNK
     Route: 048
     Dates: start: 2004, end: 2005
  11. PROLIA [Concomitant]
     Active Substance: DENOSUMAB
  12. ALENDRONATE [Concomitant]
     Active Substance: ALENDRONATE SODIUM
  13. KLONOPIN [Concomitant]
     Active Substance: CLONAZEPAM
  14. QUETIAPINE. [Concomitant]
     Active Substance: QUETIAPINE
  15. FOSAMAX [Concomitant]
     Active Substance: ALENDRONATE SODIUM
  16. VENTOLIN HFA [Concomitant]
     Active Substance: ALBUTEROL SULFATE
  17. TRIUMEQ [Concomitant]
     Active Substance: ABACAVIR SULFATE\DOLUTEGRAVIR SODIUM\LAMIVUDINE
  18. METOCLOPRAMIDE. [Concomitant]
     Active Substance: METOCLOPRAMIDE
  19. SEROQUEL [Concomitant]
     Active Substance: QUETIAPINE FUMARATE
  20. ZOLPIDEM [Concomitant]
     Active Substance: ZOLPIDEM TARTRATE
  21. PROGESTERONE. [Concomitant]
     Active Substance: PROGESTERONE
  22. MORPHINE SULFATE. [Concomitant]
     Active Substance: MORPHINE SULFATE

REACTIONS (10)
  - Emotional distress [Not Recovered/Not Resolved]
  - Anxiety [Not Recovered/Not Resolved]
  - Femur fracture [Unknown]
  - Anhedonia [Not Recovered/Not Resolved]
  - Lower limb fracture [Recovered/Resolved]
  - Economic problem [Unknown]
  - Osteopenia [Not Recovered/Not Resolved]
  - Osteoporosis [Not Recovered/Not Resolved]
  - Bone density decreased [Unknown]
  - Pain [Not Recovered/Not Resolved]

NARRATIVE: CASE EVENT DATE: 2007
